FAERS Safety Report 5328223-8 (Version None)
Quarter: 2007Q2

REPORT INFORMATION
  Report Type: 
  Country: None (occurrence: None)
  Receive Date: 20070515
  Receipt Date: 20070502
  Transmission Date: 20071010
  Serious: Yes (Death, Hospitalization)
  Sender: FDA-Public Use
  Company Number: 2007BI009427

PATIENT
  Age: 59 Year
  Sex: Female
  Weight: 58.9676 kg

DRUGS (2)
  1. AVONEX [Suspect]
     Indication: MULTIPLE SCLEROSIS
     Dosage: 30 UG QW IM
     Route: 030
     Dates: start: 20000701
  2. AVONEX [Suspect]
     Indication: MULTIPLE SCLEROSIS
     Dosage: 30 UG QW IM
     Route: 030
     Dates: end: 20070201

REACTIONS (8)
  - COLON CANCER [None]
  - EATING DISORDER [None]
  - HAEMATOCHEZIA [None]
  - LETHARGY [None]
  - LYMPHADENOPATHY [None]
  - PAIN [None]
  - STOMACH DISCOMFORT [None]
  - WEIGHT DECREASED [None]
